FAERS Safety Report 6482996-X (Version None)
Quarter: 2009Q4

REPORT INFORMATION
  Report Type: 
  Country: None (occurrence: None)
  Receive Date: 20091209
  Receipt Date: 20091019
  Transmission Date: 20100525
  Serious: No
  Sender: FDA-Public Use
  Company Number: US-KINGPHARMUSA00001-K200901303

PATIENT
  Sex: Female

DRUGS (1)
  1. EMBEDA [Suspect]
     Indication: BACK PAIN
     Dates: start: 20091001, end: 20091019

REACTIONS (2)
  - RASH [None]
  - SKIN LESION [None]
